FAERS Safety Report 4587835-X (Version None)
Quarter: 2005Q1

REPORT INFORMATION
  Report Type: 
  Country: None (occurrence: None)
  Receive Date: 20050125
  Receipt Date: 20040902
  Transmission Date: 20050727
  Serious: No
  Sender: FDA-Public Use
  Company Number: USA040977202

PATIENT
  Age: 86 Year
  Sex: Female
  Weight: 56 kg

DRUGS (9)
  1. FORTEO [Suspect]
     Indication: SPINAL FRACTURE
     Dosage: 20 UG/1 DAY
     Dates: start: 20040401
  2. BEXTRA [Concomitant]
  3. BABY ASPIRIN (ACETYSALICYLIC ACID) [Concomitant]
  4. COENZYME Q10 [Concomitant]
  5. LEXAPRO [Concomitant]
  6. CALCIUM GLUCONATE [Concomitant]
  7. AMINO ACIDS NOS [Concomitant]
  8. MULTIVITAMINS NOS (MULTIVITAMINS NOS) [Concomitant]
  9. OMEGA 3 (FISH OIL) [Concomitant]

REACTIONS (2)
  - HYPOAESTHESIA ORAL [None]
  - SWELLING FACE [None]
